FAERS Safety Report 12761304 (Version 1)
Quarter: 2016Q3

REPORT INFORMATION
  Report Type: Spontaneous
  Country: US (occurrence: US)
  Receive Date: 20160920
  Receipt Date: 20160920
  Transmission Date: 20161109
  Serious: No
  Sender: FDA-Public Use
  Company Number: US-TEVA-671449USA

PATIENT
  Sex: Female

DRUGS (1)
  1. PRAZOSIN [Suspect]
     Active Substance: PRAZOSIN
     Route: 065

REACTIONS (3)
  - Product substitution issue [Unknown]
  - Abdominal pain upper [Unknown]
  - Reaction to drug excipients [Unknown]
